FAERS Safety Report 5705587-4 (Version None)
Quarter: 2008Q2

REPORT INFORMATION
  Report Type: 
  Country: None (occurrence: None)
  Receive Date: 20080415
  Receipt Date: 20080402
  Transmission Date: 20081010
  Serious: Yes (Hospitalization)
  Sender: FDA-Public Use
  Company Number: ES-AMGEN-US270000

PATIENT
  Age: 55 Year
  Sex: Male

DRUGS (6)
  1. ENBREL [Suspect]
     Indication: RHEUMATOID ARTHRITIS
     Route: 058
  2. ISONIAZID [Interacting]
     Indication: TUBERCULOSIS
     Route: 048
  3. PYRIDOXINE [Concomitant]
     Route: 048
  4. OMEPRAZOLE [Concomitant]
     Route: 048
  5. PIROXICAM [Concomitant]
     Route: 048
  6. DEFLAZACORT [Concomitant]
     Route: 048

REACTIONS (3)
  - DRUG INTERACTION [None]
  - HEADACHE [None]
  - OPTIC NEURITIS [None]
